FAERS Safety Report 4328876-7 (Version None)
Quarter: 2004Q1

REPORT INFORMATION
  Report Type: 
  Country: None (occurrence: None)
  Receive Date: 20040329
  Receipt Date: 20040113
  Transmission Date: 20041129
  Serious: No
  Sender: FDA-Public Use
  Company Number: 04P-163-0247714-00

PATIENT
  Age: 50 Year
  Sex: Female

DRUGS (9)
  1. HUMIRA [Suspect]
     Indication: RHEUMATOID ARTHRITIS
     Dosage: 40 MG, 1 IN 2 WK, SUBCUTANEOUS
     Route: 058
     Dates: start: 20031001
  2. METHOTREXATE [Concomitant]
  3. CELECOXIB [Concomitant]
  4. VICODIN [Concomitant]
  5. PREDNISONE [Concomitant]
  6. DYAZIDE [Concomitant]
  7. LISINOPRIL [Concomitant]
  8. POLYSACCHARIDE-IRON COMPLEX [Concomitant]
  9. SIMVASTATIN [Concomitant]

REACTIONS (2)
  - DRUG INEFFECTIVE [None]
  - INJECTION SITE HAEMORRHAGE [None]
